FAERS Safety Report 22906801 (Version 3)
Quarter: 2023Q4

REPORT INFORMATION
  Report Type: Other
  Country: CN (occurrence: None)
  Receive Date: 20230905
  Receipt Date: 20231117
  Transmission Date: 20240109
  Serious: Yes (Other)
  Sender: FDA-Public Use
  Company Number: CN-ROCHE-3416195

PATIENT
  Age: 44 Year
  Sex: Female

DRUGS (13)
  1. BEVACIZUMAB [Suspect]
     Active Substance: BEVACIZUMAB
     Indication: Colon cancer metastatic
     Route: 065
  2. CAPECITABINE [Suspect]
     Active Substance: CAPECITABINE
     Indication: Colon cancer
     Route: 048
  3. TEGAFUR [Suspect]
     Active Substance: TEGAFUR
     Indication: Colon cancer
     Route: 065
  4. OXALIPLATIN [Suspect]
     Active Substance: OXALIPLATIN
     Indication: Colon cancer
     Route: 065
  5. MEROPENEM [Concomitant]
     Active Substance: MEROPENEM
  6. MIDAZOLAM [Concomitant]
     Active Substance: MIDAZOLAM
     Route: 042
  7. FRUQUINTINIB [Concomitant]
     Active Substance: FRUQUINTINIB
     Dates: start: 20220819
  8. FRUQUINTINIB [Concomitant]
     Active Substance: FRUQUINTINIB
  9. ELTROMBOPAG [Concomitant]
     Active Substance: ELTROMBOPAG
     Indication: Immune thrombocytopenia
     Route: 048
  10. VALPROATE SODIUM [Concomitant]
     Active Substance: VALPROATE SODIUM
     Indication: Epilepsy
  11. NIFEDIPINE [Concomitant]
     Active Substance: NIFEDIPINE
     Indication: Blood pressure measurement
  12. DEXAMETHASONE [Concomitant]
     Active Substance: DEXAMETHASONE
     Route: 042
  13. MANNITOL [Concomitant]
     Active Substance: MANNITOL
     Dosage: FOR 3 DAYS

REACTIONS (2)
  - Myelosuppression [Unknown]
  - Hypersensitivity [Unknown]

NARRATIVE: CASE EVENT DATE: 20220705
